FAERS Safety Report 10576413 (Version 2)
Quarter: 2014Q4

REPORT INFORMATION
  Report Type: Spontaneous
  Country: GB (occurrence: None)
  Receive Date: 20141107
  Receipt Date: 20141117
  Transmission Date: 20150529
  Serious: Yes (Hospitalization, Other)
  Sender: FDA-Public Use
  Company Number: ABR_01853_2014

PATIENT
  Age: 75 Year
  Sex: Female

DRUGS (6)
  1. ACETYLSALICYLIC ACID [Concomitant]
     Active Substance: ASPIRIN
  2. FUROSEMIDE. [Concomitant]
     Active Substance: FUROSEMIDE
  3. GLYCERYL TRINITRATE [Suspect]
     Active Substance: NITROGLYCERIN
     Indication: CHEST PAIN
     Route: 060
     Dates: start: 20141003, end: 20141003
  4. ATORVASTATIN [Concomitant]
     Active Substance: ATORVASTATIN
  5. DOXAZOSIN [Concomitant]
     Active Substance: DOXAZOSIN\DOXAZOSIN MESYLATE
  6. TIOTROPIUM (TIOTROPIUM) (TIOTROPIUM) [Suspect]
     Active Substance: TIOTROPIUM
     Indication: CHRONIC OBSTRUCTIVE PULMONARY DISEASE
     Dosage: RESPIRATORY (INHALATION)
     Dates: start: 20140305

REACTIONS (11)
  - Glomerular filtration rate decreased [None]
  - Chest discomfort [None]
  - Dizziness [None]
  - Blood pressure decreased [None]
  - Normochromic normocytic anaemia [None]
  - Loss of consciousness [None]
  - Orthostatic hypotension [None]
  - Hyponatraemia [None]
  - Incontinence [None]
  - Circulatory collapse [None]
  - Chest pain [None]

NARRATIVE: CASE EVENT DATE: 20141003
